FAERS Safety Report 17989060 (Version 2)
Quarter: 2020Q3

REPORT INFORMATION
  Report Type: Report from Study
  Country: IT (occurrence: IT)
  Receive Date: 20200707
  Receipt Date: 20200720
  Transmission Date: 20201103
  Serious: Yes (Other)
  Sender: FDA-Public Use
  Company Number: IT-PFIZER INC-2020258589

PATIENT
  Age: 47 Year
  Sex: Female

DRUGS (6)
  1. FUROSEMIDE L.F.M. [Suspect]
     Active Substance: FUROSEMIDE
     Dosage: 8 DF, 1X/DAY
     Dates: start: 20200303, end: 20200303
  2. LENDORMIN [Suspect]
     Active Substance: BROTIZOLAM
     Dosage: 20 DF, 1X/DAY
     Dates: start: 20200303, end: 20200303
  3. VORTIOXETINE HYDROBROMIDE [Concomitant]
     Active Substance: VORTIOXETINE HYDROBROMIDE
     Dosage: UNK
  4. NORVASC [Suspect]
     Active Substance: AMLODIPINE BESYLATE
     Dosage: UNK
     Dates: start: 20200303, end: 20200303
  5. AMLODIPINA MYLAN [Concomitant]
     Active Substance: AMLODIPINE BESYLATE
     Dosage: UNK
  6. LITIO CARBONATO [Concomitant]
     Active Substance: LITHIUM CARBONATE
     Dosage: UNK

REACTIONS (3)
  - Electrocardiogram QRS complex prolonged [Recovered/Resolved]
  - Intentional product misuse [Recovered/Resolved]
  - Sopor [Recovered/Resolved]

NARRATIVE: CASE EVENT DATE: 20200303
